FAERS Safety Report 17681944 (Version 3)
Quarter: 2020Q2

REPORT INFORMATION
  Report Type: Report from Study
  Country: KR (occurrence: KR)
  Receive Date: 20200418
  Receipt Date: 20200521
  Transmission Date: 20200714
  Serious: Yes (Hospitalization)
  Sender: FDA-Public Use
  Company Number: KR-CELLTRION INC.-2020KR021432

PATIENT

DRUGS (6)
  1. CRESTOR [Concomitant]
     Active Substance: ROSUVASTATIN CALCIUM
     Indication: BLOOD CHOLESTEROL INCREASED
     Dosage: 10 MG, QD
     Route: 048
     Dates: start: 20200106
  2. TENORMIN [Concomitant]
     Active Substance: ATENOLOL
     Indication: HYPERTENSION
     Dosage: 25 MG, BID
     Route: 048
     Dates: start: 20200106
  3. HERZUMA [Suspect]
     Active Substance: TRASTUZUMAB-PKRB
     Indication: SALIVARY GLAND CANCER
     Dosage: 474 MG, EVERY 3 WEEKS
     Route: 042
     Dates: start: 20200113, end: 20200316
  4. CASODEX [Concomitant]
     Active Substance: BICALUTAMIDE
     Indication: PROSTATE CANCER
     Dosage: 100 MG, QD
     Route: 048
     Dates: start: 20200106
  5. SIGMART [Concomitant]
     Active Substance: NICORANDIL
     Indication: ANGINA PECTORIS
     Dosage: 5 MG, BID
     Route: 048
     Dates: start: 20200106
  6. VASTINAN MR [Concomitant]
     Indication: ANGINA PECTORIS
     Dosage: 35 MG, BID
     Route: 048
     Dates: start: 20200106

REACTIONS (2)
  - Off label use [Unknown]
  - Haematochezia [Recovered/Resolved]

NARRATIVE: CASE EVENT DATE: 20200408
